FAERS Safety Report 9677755 (Version 1)
Quarter: 2013Q4

REPORT INFORMATION
  Report Type: Spontaneous
  Country: DE (occurrence: DE)
  Receive Date: 20131108
  Receipt Date: 20131108
  Transmission Date: 20140711
  Serious: Yes (Death, Hospitalization)
  Sender: FDA-Public Use
  Company Number: DE-JNJFOC-20131102887

PATIENT
  Sex: Female

DRUGS (6)
  1. XARELTO [Suspect]
     Indication: PRODUCT USED FOR UNKNOWN INDICATION
     Route: 048
     Dates: start: 20130426
  2. SACCHAROMYCES BOULARDII [Concomitant]
     Route: 065
     Dates: start: 20131009
  3. METFORMIN [Concomitant]
     Route: 065
  4. METOPROLOL [Concomitant]
     Route: 065
  5. EXELON [Concomitant]
     Route: 065
  6. OXYBUTYNIN [Concomitant]
     Route: 065

REACTIONS (3)
  - Renal failure [Fatal]
  - Pain [Fatal]
  - Haemorrhage [Fatal]
